FAERS Safety Report 16780608 (Version 1)
Quarter: 2019Q3

REPORT INFORMATION
  Report Type: Spontaneous
  Country: US (occurrence: US)
  Receive Date: 20190906
  Receipt Date: 20190906
  Transmission Date: 20191005
  Serious: No
  Sender: FDA-Public Use
  Company Number: US-SA-2019SA247269

PATIENT
  Age: 65 Year
  Sex: Male

DRUGS (11)
  1. BRILINTA [Concomitant]
     Active Substance: TICAGRELOR
  2. NABUMETONE. [Concomitant]
     Active Substance: NABUMETONE
  3. CEPHALEXIN [CEFALEXIN] [Concomitant]
     Active Substance: CEPHALEXIN
  4. ESCITALOPRAM [Concomitant]
     Active Substance: ESCITALOPRAM OXALATE
  5. NITROGLYCERIN. [Concomitant]
     Active Substance: NITROGLYCERIN
  6. RAMIPRIL. [Concomitant]
     Active Substance: RAMIPRIL
  7. AUBAGIO [Suspect]
     Active Substance: TERIFLUNOMIDE
     Dosage: 1 DF, QD
     Route: 048
  8. ACETAMINOPHEN. [Concomitant]
     Active Substance: ACETAMINOPHEN
     Dosage: UNK MG
  9. ASPIRIN [ACETYLSALICYLIC ACID] [Concomitant]
     Active Substance: ASPIRIN
  10. RANEXA [Concomitant]
     Active Substance: RANOLAZINE
  11. VITAMIN B12 [HYDROXOCOBALAMIN] [Concomitant]
     Active Substance: HYDROXOCOBALAMIN

REACTIONS (1)
  - Hallucination [Not Recovered/Not Resolved]
